FAERS Safety Report 7322042-9 (Version None)
Quarter: 2011Q1

REPORT INFORMATION
  Report Type: 
  Country: None (occurrence: None)
  Receive Date: 20110228
  Receipt Date: 20110214
  Transmission Date: 20110831
  Serious: Yes (Hospitalization, Other)
  Sender: FDA-Public Use
  Company Number: JP-CELGENEUS-087-21880-10121088

PATIENT
  Sex: Female

DRUGS (37)
  1. REVLIMID [Suspect]
     Dosage: 15 MILLIGRAM
     Route: 048
     Dates: start: 20100908, end: 20100914
  2. REVLIMID [Suspect]
     Dosage: 10 MILLIGRAM
     Route: 048
     Dates: start: 20101101, end: 20101121
  3. DECADRON [Concomitant]
     Dosage: 1 MILLIGRAM
     Route: 048
     Dates: start: 20100820, end: 20100902
  4. DECADRON [Concomitant]
     Dosage: 1 MILLIGRAM
     Route: 048
     Dates: start: 20101004, end: 20110112
  5. DEXART [Concomitant]
     Dosage: 0.5A
     Route: 041
     Dates: start: 20100731, end: 20100803
  6. OXYCONTIN [Concomitant]
     Dosage: 10 MILLIGRAM
     Route: 048
     Dates: start: 20100816, end: 20100822
  7. ZOMETA [Concomitant]
     Indication: PROPHYLAXIS
     Dosage: 4 MILLIGRAM
     Route: 041
     Dates: start: 20100820, end: 20100820
  8. REVLIMID [Suspect]
     Dosage: 10 MILLIGRAM
     Route: 048
     Dates: start: 20101004, end: 20101025
  9. OMEPRAZON [Concomitant]
     Indication: PROPHYLAXIS
     Dosage: 20 MILLIGRAM
     Route: 048
     Dates: start: 20100729, end: 20100924
  10. KARY UNI [Concomitant]
     Dosage: QL
     Route: 047
     Dates: start: 20101004, end: 20101215
  11. VALGANCICLOVIR [Concomitant]
     Indication: PROPHYLAXIS
     Dosage: 900 MILLIGRAM
     Route: 048
     Dates: start: 20100917, end: 20100918
  12. REVLIMID [Suspect]
     Dosage: 10 MILLIGRAM
     Route: 048
     Dates: start: 20110113, end: 20110203
  13. REVLIMID [Suspect]
     Dosage: 25 MILLIGRAM
     Route: 048
     Dates: start: 20100827, end: 20100906
  14. OMEPRAZON [Concomitant]
     Dosage: 20 MILLIGRAM
     Route: 048
     Dates: start: 20101004, end: 20110210
  15. TRYPTANOL [Concomitant]
     Dosage: 50 MILLIGRAM
     Route: 048
     Dates: start: 20100729, end: 20100924
  16. ASPIRIN [Concomitant]
     Dosage: 100 MILLIGRAM
     Route: 048
     Dates: start: 20101001, end: 20101201
  17. OXYCONTIN [Concomitant]
     Dosage: 20 MILLIGRAM
     Route: 048
     Dates: start: 20100802, end: 20100808
  18. OXYCONTIN [Concomitant]
     Dosage: 10 MILLIGRAM
     Route: 048
     Dates: start: 20100827, end: 20100924
  19. OXYCONTIN [Concomitant]
     Dosage: 10 MILLIGRAM
     Route: 048
     Dates: start: 20101004, end: 20110210
  20. DEXART [Concomitant]
     Dosage: 0.5A
     Route: 041
     Dates: start: 20100804, end: 20100809
  21. TRYPTANOL [Concomitant]
     Dosage: 50 MILLIGRAM
     Route: 048
     Dates: start: 20101001, end: 20110210
  22. KARY UNI [Concomitant]
     Dosage: QL
     Route: 047
     Dates: start: 20100827, end: 20100924
  23. ALLOID G [Concomitant]
     Indication: PROPHYLAXIS
     Dosage: 60 MILLILITER
     Route: 048
     Dates: start: 20101213, end: 20101226
  24. REVLIMID [Suspect]
     Indication: MULTIPLE MYELOMA
     Dosage: 25 MILLIGRAM
     Route: 048
     Dates: start: 20100729, end: 20100819
  25. DEXART [Concomitant]
     Dosage: 33 MILLIGRAM
     Route: 041
     Dates: start: 20100903, end: 20100903
  26. BISOLVON [Concomitant]
     Indication: PROPHYLAXIS
     Dosage: QL
     Route: 055
     Dates: start: 20100724, end: 20100724
  27. KARY UNI [Concomitant]
     Indication: PROPHYLAXIS
     Dosage: QL
     Route: 047
     Dates: start: 20100825, end: 20100825
  28. DEXART [Concomitant]
     Dosage: 33 MILLIGRAM
     Route: 041
     Dates: start: 20100827, end: 20100827
  29. MAGLAX [Concomitant]
     Indication: PROPHYLAXIS
     Dosage: 1500 MILLIGRAM
     Route: 048
     Dates: start: 20100729, end: 20100924
  30. MAGLAX [Concomitant]
     Dosage: 1500 MILLIGRAM
     Route: 048
     Dates: start: 20101005, end: 20101031
  31. LENADEX [Suspect]
     Indication: MULTIPLE MYELOMA
     Dosage: 4 MILLIGRAM
     Route: 048
     Dates: start: 20110113, end: 20110210
  32. DECADRON [Concomitant]
     Indication: MULTIPLE MYELOMA
     Dosage: 4 MILLIGRAM
     Route: 048
     Dates: start: 20100810, end: 20100819
  33. DECADRON [Concomitant]
     Dosage: 1 MILLIGRAM
     Route: 048
     Dates: start: 20100904, end: 20100907
  34. DEXART [Concomitant]
     Indication: MULTIPLE MYELOMA
     Dosage: 4A
     Route: 041
     Dates: start: 20100730, end: 20100730
  35. ASPIRIN [Concomitant]
     Indication: PROPHYLAXIS
     Dosage: 100 MILLIGRAM
     Route: 048
     Dates: start: 20100729, end: 20100924
  36. OXYCONTIN [Concomitant]
     Indication: MULTIPLE MYELOMA
     Dosage: 30 MILLIGRAM
     Route: 048
     Dates: start: 20100726, end: 20100801
  37. OXYCONTIN [Concomitant]
     Dosage: 15 MILLIGRAM
     Route: 048
     Dates: start: 20100809, end: 20100815

REACTIONS (11)
  - PHARYNGITIS [None]
  - HYPOKALAEMIA [None]
  - DECUBITUS ULCER [None]
  - LEUKOPENIA [None]
  - DUODENAL ULCER [None]
  - GASTRIC ULCER [None]
  - STOMATITIS [None]
  - PLATELET COUNT DECREASED [None]
  - PNEUMONIA [None]
  - CONSTIPATION [None]
  - WHITE BLOOD CELL COUNT DECREASED [None]
